FAERS Safety Report 20510592 (Version 1)
Quarter: 2022Q1

REPORT INFORMATION
  Report Type: Spontaneous
  Country: CZ (occurrence: CZ)
  Receive Date: 20220224
  Receipt Date: 20220224
  Transmission Date: 20220423
  Serious: Yes (Hospitalization)
  Sender: FDA-Public Use
  Company Number: CZ-NOVARTISPH-NVSC2022CZ041007

PATIENT
  Age: 49 Year
  Sex: Female

DRUGS (1)
  1. COSENTYX [Suspect]
     Active Substance: SECUKINUMAB
     Indication: Product used for unknown indication
     Dosage: 150 MG, QMO
     Route: 065
     Dates: start: 20200619

REACTIONS (2)
  - Peritonsillitis [Recovering/Resolving]
  - Dyspnoea [Recovering/Resolving]
